FAERS Safety Report 16748953 (Version 2)
Quarter: 2019Q3

REPORT INFORMATION
  Report Type: Report from Study
  Country: None (occurrence: CO)
  Receive Date: 20190828
  Receipt Date: 20190917
  Transmission Date: 20191005
  Serious: Yes (Hospitalization)
  Sender: FDA-Public Use
  Company Number: CO-ABBVIE-19K-036-2903924-00

PATIENT
  Age: 29 Year
  Sex: Male
  Weight: 62 kg

DRUGS (2)
  1. ZEMPLAR [Suspect]
     Active Substance: PARICALCITOL
     Indication: HYPERPARATHYROIDISM
  2. ZEMPLAR [Suspect]
     Active Substance: PARICALCITOL
     Indication: CHRONIC KIDNEY DISEASE
     Dosage: FREQUENCY TEXT: POST-DIALYSIS
     Route: 042
     Dates: start: 20181214, end: 20190816

REACTIONS (4)
  - Device related infection [Recovering/Resolving]
  - Dyspnoea [Recovering/Resolving]
  - Surgery [Recovering/Resolving]
  - Abdominal pain upper [Recovering/Resolving]

NARRATIVE: CASE EVENT DATE: 20190816
